FAERS Safety Report 5737873-6 (Version None)
Quarter: 2008Q2

REPORT INFORMATION
  Report Type: 
  Country: None (occurrence: None)
  Receive Date: 20080512
  Receipt Date: 20080512
  Transmission Date: 20081010
  Serious: Yes (Other)
  Sender: FDA-Public Use
  Company Number: None

PATIENT
  Sex: Female

DRUGS (1)
  1. CIPRO [Suspect]
     Dosage: 500MG      PO  BID X10 DAYS

REACTIONS (2)
  - ILL-DEFINED DISORDER [None]
  - TREATMENT FAILURE [None]
